FAERS Safety Report 15989222 (Version 2)
Quarter: 2019Q1

REPORT INFORMATION
  Report Type: Spontaneous
  Country: US (occurrence: US)
  Receive Date: 20190221
  Receipt Date: 20190228
  Transmission Date: 20190418
  Serious: No
  Sender: FDA-Public Use
  Company Number: US-JNJFOC-20190138280

PATIENT
  Age: 23 Year
  Sex: Female

DRUGS (5)
  1. IBUPROFEN. [Suspect]
     Active Substance: IBUPROFEN
     Indication: SWELLING
     Route: 048
     Dates: start: 20190102
  2. BENADRYL [Suspect]
     Active Substance: DIPHENHYDRAMINE HYDROCHLORIDE
     Indication: FACIAL PAIN
     Route: 048
     Dates: start: 201901
  3. IBUPROFEN. [Suspect]
     Active Substance: IBUPROFEN
     Indication: BURNING SENSATION
     Route: 048
     Dates: start: 20190102
  4. IBUPROFEN. [Suspect]
     Active Substance: IBUPROFEN
     Indication: FACIAL PAIN
     Route: 048
     Dates: start: 20190102
  5. BENADRYL [Suspect]
     Active Substance: DIPHENHYDRAMINE HYDROCHLORIDE
     Indication: SWELLING
     Route: 048
     Dates: start: 201901

REACTIONS (2)
  - Off label use [Unknown]
  - Product use in unapproved indication [Unknown]

NARRATIVE: CASE EVENT DATE: 20190102
